FAERS Safety Report 8053833-7 (Version None)
Quarter: 2012Q1

REPORT INFORMATION
  Report Type: 
  Country: None (occurrence: None)
  Receive Date: 20120118
  Receipt Date: 20120111
  Transmission Date: 20120608
  Serious: Yes (Other)
  Sender: FDA-Public Use
  Company Number: US-PFIZER INC-2011291534

PATIENT
  Sex: Male

DRUGS (6)
  1. LATANOPROST [Suspect]
     Dosage: OD ONLY
     Dates: start: 20111215
  2. LATANOPROST [Suspect]
     Indication: GLAUCOMA
     Dosage: UNK
     Dates: start: 20110901
  3. TRAVATAN [Concomitant]
  4. SIMVASTATIN [Concomitant]
     Dosage: 20 MG, 1X/DAY
  5. LATANOPROST [Suspect]
     Dosage: OD ONLY
     Dates: start: 20111207
  6. OMEPRAZOLE [Concomitant]
     Dosage: 20 MG, 1X/DAY

REACTIONS (2)
  - DRUG INEFFECTIVE [None]
  - INTRAOCULAR PRESSURE INCREASED [None]
